FAERS Safety Report 17393047 (Version 5)
Quarter: 2020Q2

REPORT INFORMATION
  Report Type: Spontaneous
  Country: US (occurrence: US)
  Receive Date: 20200208
  Receipt Date: 20200407
  Transmission Date: 20200713
  Serious: No
  Sender: FDA-Public Use
  Company Number: US-UNITED THERAPEUTICS-UNT-2020-002047

PATIENT
  Age: 61 Year
  Sex: Female
  Weight: 87.53 kg

DRUGS (3)
  1. REMODULIN [Suspect]
     Active Substance: TREPROSTINIL
     Indication: PULMONARY ARTERIAL HYPERTENSION
     Dosage: 0.048 ?G/KG, CONTINUING
     Route: 058
     Dates: start: 20170303
  2. ADEMPAS [Concomitant]
     Active Substance: RIOCIGUAT
     Indication: PRODUCT USED FOR UNKNOWN INDICATION
     Dosage: UNK
     Route: 065
  3. REMODULIN [Suspect]
     Active Substance: TREPROSTINIL
     Dosage: UNK UNK, CONTINUING
     Route: 058

REACTIONS (13)
  - Infusion site rash [Unknown]
  - Alopecia [Unknown]
  - Increased appetite [Unknown]
  - Shift work disorder [Unknown]
  - Vulvovaginal burning sensation [Not Recovered/Not Resolved]
  - Haemoglobin decreased [Unknown]
  - Dizziness [Unknown]
  - Weight increased [Unknown]
  - Urinary tract infection [Unknown]
  - Infusion site pain [Not Recovered/Not Resolved]
  - Trichorrhexis [Unknown]
  - Memory impairment [Unknown]
  - Poor quality sleep [Unknown]

NARRATIVE: CASE EVENT DATE: 201911
